FAERS Safety Report 24855279 (Version 1)
Quarter: 2025Q1

REPORT INFORMATION
  Report Type: Spontaneous
  Country: US (occurrence: US)
  Receive Date: 20250117
  Receipt Date: 20250117
  Transmission Date: 20250408
  Serious: Yes (Other)
  Sender: CURRAX PHARMACEUTICALS
  Company Number: US-NALPROPION PHARMACEUTICALS INC.-2020-011470

PATIENT
  Age: 59 Year
  Sex: Female
  Weight: 81.633 kg

DRUGS (1)
  1. CONTRAVE [Suspect]
     Active Substance: BUPROPION HYDROCHLORIDE\NALTREXONE HYDROCHLORIDE
     Indication: Weight control
     Route: 048
     Dates: start: 20200831, end: 20201015

REACTIONS (7)
  - Blood pressure increased [Recovered/Resolved]
  - Sinusitis [Recovered/Resolved]
  - Upper-airway cough syndrome [Recovered/Resolved]
  - Lymphadenopathy [Not Recovered/Not Resolved]
  - Malaise [Recovered/Resolved]
  - Heart rate increased [Recovered/Resolved]
  - Hypersensitivity [Not Recovered/Not Resolved]

NARRATIVE: CASE EVENT DATE: 20201008
